FAERS Safety Report 7915427 (Version 4)
Quarter: 2024Q2

REPORT INFORMATION
  Report Type: Spontaneous
  Country: US (occurrence: US)
  Receive Date: 20110426
  Receipt Date: 20240424
  Transmission Date: 20240716
  Serious: Yes (Other)
  Sender: FDA-Public Use
  Company Number: US-BAYER-2011-016128

PATIENT
  Age: 28 Year
  Sex: Female
  Weight: 53.061 kg

DRUGS (1)
  1. MIRENA [Suspect]
     Active Substance: LEVONORGESTREL
     Indication: Contraception
     Dosage: 20?G/DAY
     Route: 015
     Dates: start: 20071004, end: 20110127

REACTIONS (5)
  - Unevaluable event [None]
  - Pregnancy with contraceptive device [None]
  - Heavy menstrual bleeding [None]
  - Dysmenorrhoea [None]
  - Abortion spontaneous [None]
